FAERS Safety Report 14051959 (Version 7)
Quarter: 2018Q3

REPORT INFORMATION
  Report Type: Spontaneous
  Country: US (occurrence: US)
  Receive Date: 20171006
  Receipt Date: 20180816
  Transmission Date: 20181010
  Serious: Yes (Other)
  Sender: FDA-Public Use
  Company Number: US-PFIZER INC-2017428662

PATIENT
  Age: 47 Year
  Sex: Female

DRUGS (3)
  1. IBRANCE [Suspect]
     Active Substance: PALBOCICLIB
     Dosage: 125 MG, CYCLIC (DAILY FOR 21 DAYS)
     Route: 048
     Dates: start: 20170614
  2. IBRANCE [Suspect]
     Active Substance: PALBOCICLIB
     Dosage: 125 MG, CYCLIC (DAILY X 21 DAYS THEN OFF FOR 7 DAYS)
     Route: 048
     Dates: start: 20170615
  3. IBRANCE [Suspect]
     Active Substance: PALBOCICLIB
     Indication: BREAST CANCER FEMALE
     Dosage: 125 MG, DAILY
     Route: 048

REACTIONS (5)
  - Paraesthesia [Unknown]
  - Hypoaesthesia [Unknown]
  - Fatigue [Unknown]
  - Neuropathy peripheral [Unknown]
  - Nausea [Unknown]

NARRATIVE: CASE EVENT DATE: 20180404
